FAERS Safety Report 15126342 (Version 1)
Quarter: 2018Q3

REPORT INFORMATION
  Report Type: Spontaneous
  Country: ES (occurrence: ES)
  Receive Date: 20180710
  Receipt Date: 20180710
  Transmission Date: 20181010
  Serious: Yes (Disabling, Other)
  Sender: FDA-Public Use
  Company Number: ES-GLAXOSMITHKLINE-ES2018117934

PATIENT
  Age: 47 Year
  Sex: Male
  Weight: 80 kg

DRUGS (1)
  1. AVAMYS [Suspect]
     Active Substance: FLUTICASONE FUROATE
     Indication: SINUSITIS
     Dosage: ONCE PER DAY
     Route: 045
     Dates: start: 20170130, end: 20170131

REACTIONS (2)
  - Myopia [Recovered/Resolved with Sequelae]
  - Vitreous detachment [Recovered/Resolved with Sequelae]

NARRATIVE: CASE EVENT DATE: 20170201
